FAERS Safety Report 15980423 (Version 1)
Quarter: 2019Q1

REPORT INFORMATION
  Report Type: Spontaneous
  Country: US (occurrence: US)
  Receive Date: 20190219
  Receipt Date: 20190219
  Transmission Date: 20190418
  Serious: Yes (Other)
  Sender: FDA-Public Use
  Company Number: US-PFIZER INC-2019068303

PATIENT
  Age: 56 Year
  Sex: Female
  Weight: 49.89 kg

DRUGS (5)
  1. SILDENAFIL CITRATE. [Suspect]
     Active Substance: SILDENAFIL CITRATE
     Dosage: UNK
  2. WARFARIN [WARFARIN SODIUM] [Concomitant]
     Dosage: UNK
  3. LETAIRIS [Suspect]
     Active Substance: AMBRISENTAN
     Dosage: UNK
  4. ORENITRAM [Suspect]
     Active Substance: TREPROSTINIL
     Indication: PULMONARY ARTERIAL HYPERTENSION
     Dosage: 10 MG, 3X/DAY
     Route: 048
     Dates: start: 20151106
  5. REVATIO [Concomitant]
     Active Substance: SILDENAFIL CITRATE
     Dosage: UNK

REACTIONS (5)
  - Headache [Unknown]
  - Heart rate increased [Unknown]
  - Middle insomnia [Unknown]
  - Helicobacter infection [Unknown]
  - Gastrointestinal disorder [Unknown]
